FAERS Safety Report 18422236 (Version 2)
Quarter: 2020Q4

REPORT INFORMATION
  Report Type: Report from Study
  Country: BR (occurrence: BR)
  Receive Date: 20201023
  Receipt Date: 20201201
  Transmission Date: 20210114
  Serious: Yes (Other)
  Sender: FDA-Public Use
  Company Number: BR-BAYER-2020-218015

PATIENT
  Age: 36 Year
  Sex: Female

DRUGS (7)
  1. DOMPERIDONE [Concomitant]
     Active Substance: DOMPERIDONE
     Indication: GASTROOESOPHAGEAL REFLUX DISEASE
  2. STIVARGA [Suspect]
     Active Substance: REGORAFENIB
     Indication: NEOPLASM MALIGNANT
     Dosage: 80 MG, QD (FIRST WEEK)
     Dates: start: 20200827
  3. STIVARGA [Suspect]
     Active Substance: REGORAFENIB
     Indication: NEOPLASM MALIGNANT
     Dosage: 120 MG, QD (AS OF SECOND WEEK)
  4. PANTOPRAZOL [PANTOPRAZOLE] [Concomitant]
     Active Substance: PANTOPRAZOLE
     Indication: GASTROOESOPHAGEAL REFLUX DISEASE
  5. METFORMINA [METFORMIN] [Concomitant]
     Active Substance: METFORMIN HYDROCHLORIDE
     Indication: DIABETES MELLITUS
     Dosage: 850 MG, QD
     Dates: start: 2008
  6. PANTOPRAZOL [PANTOPRAZOLE] [Concomitant]
     Active Substance: PANTOPRAZOLE
     Indication: HERNIA
     Dosage: 40 MG, QD
     Dates: start: 2019
  7. DOMPERIDONE [Concomitant]
     Active Substance: DOMPERIDONE
     Indication: HERNIA
     Dosage: 25 MG, QD
     Dates: start: 2019

REACTIONS (6)
  - Product use in unapproved indication [None]
  - Inflammation [Recovering/Resolving]
  - Rash vesicular [Recovering/Resolving]
  - Off label use [None]
  - Erythema [Recovering/Resolving]
  - Peripheral swelling [Recovering/Resolving]

NARRATIVE: CASE EVENT DATE: 202009
